FAERS Safety Report 8613895-2 (Version None)
Quarter: 2012Q3

REPORT INFORMATION
  Report Type: 
  Country: None (occurrence: None)
  Receive Date: 20120823
  Receipt Date: 20120810
  Transmission Date: 20120928
  Serious: Yes (Other)
  Sender: FDA-Public Use
  Company Number: JP-MERCK-1205USA04419

PATIENT

DRUGS (8)
  1. SPIRONOLACTONE [Concomitant]
  2. PILSICAINIDE HYDROCHLORIDE [Concomitant]
  3. JANUVIA [Suspect]
     Indication: TYPE 2 DIABETES MELLITUS
     Dosage: 25 MG, QD
     Route: 048
     Dates: start: 20110107
  4. TORSEMIDE [Concomitant]
     Dosage: UNK
     Dates: end: 20110606
  5. CARVEDILOL [Concomitant]
     Dates: end: 20110705
  6. LANIRAPID [Concomitant]
  7. WARFARIN POTASSIUM [Concomitant]
  8. AMLODIPINE BESYLATE [Concomitant]
     Dates: end: 20110405

REACTIONS (2)
  - PNEUMONIA [None]
  - BRONCHITIS [None]
